FAERS Safety Report 22074854 (Version 1)
Quarter: 2023Q1

REPORT INFORMATION
  Report Type: Spontaneous
  Country: CN (occurrence: None)
  Receive Date: 20230308
  Receipt Date: 20230308
  Transmission Date: 20230418
  Serious: Yes (Hospitalization)
  Sender: FDA-Public Use
  Company Number: 2023A052782

PATIENT
  Age: 22255 Day
  Sex: Female

DRUGS (6)
  1. OSIMERTINIB MESYLATE [Suspect]
     Active Substance: OSIMERTINIB MESYLATE
     Indication: Lung neoplasm malignant
     Route: 048
     Dates: start: 20180701, end: 20230219
  2. DEXTROMETHORPHAN HYDROBROMIDE\GUAIFENESIN [Suspect]
     Active Substance: DEXTROMETHORPHAN HYDROBROMIDE\GUAIFENESIN
     Indication: Cerebral infarction
     Route: 048
     Dates: start: 20180701, end: 20230219
  3. THROMBOPOIETIN [Concomitant]
     Active Substance: THROMBOPOIETIN
     Dosage: 15000U IH ONCE
     Dates: start: 20230220
  4. RECOMBINANT HUMAN GRANULOCYTE/MACROPHAGE [Concomitant]
     Dosage: 300UG IH QD
     Dates: start: 20230221, end: 20230225
  5. OPRELVEKIN [Concomitant]
     Active Substance: OPRELVEKIN
     Dosage: 24 MILLION U IH QD
     Dates: start: 20230221, end: 20230225
  6. AVATROMBOPAG [Concomitant]
     Active Substance: AVATROMBOPAG
     Route: 048
     Dates: start: 20230221, end: 20230225

REACTIONS (1)
  - Myelosuppression [Recovering/Resolving]

NARRATIVE: CASE EVENT DATE: 20230219
